FAERS Safety Report 5959404-8 (Version None)
Quarter: 2008Q4

REPORT INFORMATION
  Report Type: 
  Country: None (occurrence: None)
  Receive Date: 20081120
  Receipt Date: 20080827
  Transmission Date: 20090506
  Serious: No
  Sender: FDA-Public Use
  Company Number: A0744716A

PATIENT
  Sex: Female

DRUGS (10)
  1. VERAMYST [Suspect]
     Dosage: 1PUFF TWICE PER DAY
     Route: 045
     Dates: start: 20060101
  2. PACERONE [Concomitant]
  3. XANAX [Concomitant]
  4. FIORICET [Concomitant]
  5. LYRICA [Concomitant]
  6. ZYRTEC [Concomitant]
  7. COUMADIN [Concomitant]
  8. MISOPROSTOL [Concomitant]
  9. DICLOFENAC SODIUM [Concomitant]
  10. CEREFOLIN WITH NAC [Concomitant]

REACTIONS (1)
  - EPISTAXIS [None]
